FAERS Safety Report 7080145-0 (Version None)
Quarter: 2010Q4

REPORT INFORMATION
  Report Type: 
  Country: None (occurrence: None)
  Receive Date: 20101102
  Receipt Date: 20101026
  Transmission Date: 20110411
  Serious: Yes (Death, Life-Threatening, Hospitalization)
  Sender: FDA-Public Use
  Company Number: US-ELI_LILLY_AND_COMPANY-US201010000621

PATIENT
  Sex: Female
  Weight: 73.3 kg

DRUGS (11)
  1. PEMETREXED [Suspect]
     Indication: NON-SMALL CELL LUNG CANCER
     Dosage: 500 MG/M2, OTHER
     Route: 042
     Dates: start: 20100827, end: 20100917
  2. CARBOPLATIN [Suspect]
     Indication: NON-SMALL CELL LUNG CANCER
     Dosage: 6 D/F (AUC), OTHER
     Route: 042
     Dates: start: 20100827, end: 20100917
  3. BEVACIZUMAB [Suspect]
     Indication: NON-SMALL CELL LUNG CANCER
     Dosage: 15 MG/KG, OTHER
     Route: 042
     Dates: start: 20100827, end: 20100917
  4. UREQUIN [Concomitant]
     Indication: BRONCHITIS
     Dates: start: 20100903, end: 20101001
  5. IMODIUM [Concomitant]
     Indication: DIARRHOEA
     Dosage: UNK, UNK
     Dates: start: 20100901, end: 20101001
  6. XANAX [Concomitant]
     Indication: ANXIETY
     Dosage: UNK, UNK
     Dates: start: 20100910, end: 20101001
  7. LYRICA [Concomitant]
     Indication: NEUROPATHY PERIPHERAL
     Dosage: UNK, UNK
     Dates: start: 20070101, end: 20101001
  8. LASIX [Concomitant]
     Indication: SWELLING
     Dosage: UNK, UNK
     Dates: start: 20000101, end: 20101001
  9. ZOFRAN [Concomitant]
     Indication: NAUSEA
     Dosage: UNK, UNK
     Dates: start: 20100901, end: 20101001
  10. MORPHINE SULFATE [Concomitant]
     Indication: PAIN
     Dates: start: 20100901, end: 20101001
  11. LEVAQUIN [Concomitant]
     Indication: BRONCHITIS

REACTIONS (4)
  - RENAL FAILURE ACUTE [None]
  - RESPIRATORY FAILURE [None]
  - SEPTIC SHOCK [None]
  - UNRESPONSIVE TO STIMULI [None]
